FAERS Safety Report 7601194-7 (Version None)
Quarter: 2011Q3

REPORT INFORMATION
  Report Type: 
  Country: None (occurrence: None)
  Receive Date: 20110711
  Receipt Date: 20110701
  Transmission Date: 20111222
  Serious: Yes (Other)
  Sender: FDA-Public Use
  Company Number: US-GLAXOSMITHKLINE-A0936157A

PATIENT
  Age: 62 Year
  Sex: Female
  Weight: 79.5 kg

DRUGS (11)
  1. PREDNISONE [Concomitant]
     Indication: SJOGREN'S SYNDROME
     Dosage: 15MG PER DAY
  2. REMERON [Concomitant]
     Indication: SLEEP DISORDER
     Dosage: .5TAB PER DAY
     Route: 048
  3. PRISTIQ [Suspect]
     Indication: DEPRESSION
     Route: 048
     Dates: start: 20100505, end: 20100526
  4. IMURAN [Concomitant]
     Indication: RHEUMATOID ARTHRITIS
     Dosage: 50MG UNKNOWN
  5. ZOCOR [Concomitant]
     Indication: BLOOD CHOLESTEROL ABNORMAL
     Dosage: 20MG PER DAY
     Route: 048
  6. EFFEXOR [Suspect]
     Indication: DEPRESSION
     Dosage: 150MG TWICE PER DAY
     Route: 048
  7. NEXIUM [Concomitant]
     Dosage: 40MG PER DAY
     Route: 048
  8. IMITREX [Suspect]
     Indication: MIGRAINE
     Dosage: 50MG AS REQUIRED
     Route: 048
  9. OXYCODONE HCL [Concomitant]
     Indication: PAIN
  10. MORPHINE [Concomitant]
     Indication: PAIN
     Dosage: 100MG TWICE PER DAY
  11. POTASSIUM [Concomitant]
     Dosage: 20MEQ PER DAY

REACTIONS (8)
  - SUICIDE ATTEMPT [None]
  - FOOT FRACTURE [None]
  - DRUG INTERACTION [None]
  - ABNORMAL BEHAVIOUR [None]
  - CONFUSIONAL STATE [None]
  - FEELING ABNORMAL [None]
  - INJURY [None]
  - PAIN [None]
